FAERS Safety Report 22313991 (Version 1)
Quarter: 2023Q2

REPORT INFORMATION
  Report Type: Spontaneous
  Country: CZ (occurrence: CZ)
  Receive Date: 20230512
  Receipt Date: 20230512
  Transmission Date: 20230722
  Serious: Yes (Other)
  Sender: FDA-Public Use
  Company Number: CZ-ARBOR PHARMACEUTICALS, LLC-CZ-2023ARB003917

PATIENT
  Age: 74 Year
  Sex: Male

DRUGS (3)
  1. TRIPTODUR [Suspect]
     Active Substance: TRIPTORELIN
     Indication: Prostate cancer
     Dosage: (22.5 MG)
     Dates: start: 202008
  2. TRIPTODUR [Suspect]
     Active Substance: TRIPTORELIN
  3. TRIPTODUR [Suspect]
     Active Substance: TRIPTORELIN

REACTIONS (2)
  - Metastases to lung [Unknown]
  - Prostate cancer [Unknown]

NARRATIVE: CASE EVENT DATE: 20220201
